FAERS Safety Report 10264142 (Version 1)
Quarter: 2014Q2

REPORT INFORMATION
  Report Type: Spontaneous
  Country: CN (occurrence: CN)
  Receive Date: 20140627
  Receipt Date: 20140627
  Transmission Date: 20141212
  Serious: Yes (Hospitalization, Disabling)
  Sender: FDA-Public Use
  Company Number: CN-BRISTOL-MYERS SQUIBB COMPANY-21067848

PATIENT
  Age: 23 Year
  Sex: Female
  Weight: 79 kg

DRUGS (2)
  1. METFORMIN HCL TABS 500MG [Suspect]
     Indication: DIABETES MELLITUS
     Route: 048
     Dates: start: 20130208, end: 20130317
  2. FENOFIBRATE [Suspect]
     Indication: HYPERLIPIDAEMIA
     Dosage: TABLET
     Route: 048
     Dates: start: 20130208, end: 20130317

REACTIONS (1)
  - Drug-induced liver injury [Recovering/Resolving]
